FAERS Safety Report 17690233 (Version 1)
Quarter: 2020Q2

REPORT INFORMATION
  Report Type: Spontaneous
  Country: US (occurrence: US)
  Receive Date: 20200421
  Receipt Date: 20200421
  Transmission Date: 20200714
  Serious: No
  Sender: FDA-Public Use
  Company Number: US-PARATEK PHARMACEUTICALS, INC.-2020PTK00034

PATIENT
  Sex: Female

DRUGS (2)
  1. NUZYRA [Suspect]
     Active Substance: OMADACYCLINE
     Indication: STAPHYLOCOCCAL INFECTION
     Route: 048
  2. UNSPECIFIED CREAM [Suspect]
     Active Substance: UNSPECIFIED INGREDIENT

REACTIONS (3)
  - Off label use [Recovered/Resolved]
  - Unevaluable event [Unknown]
  - Discharge [Unknown]
